FAERS Safety Report 6554124-3 (Version None)
Quarter: 2010Q1

REPORT INFORMATION
  Report Type: 
  Country: None (occurrence: None)
  Receive Date: 20100127
  Receipt Date: 20100115
  Transmission Date: 20100710
  Serious: Yes (Hospitalization)
  Sender: FDA-Public Use
  Company Number: JP-BRISTOL-MYERS SQUIBB COMPANY-14945828

PATIENT
  Age: 41 Year
  Sex: Male

DRUGS (3)
  1. ABILIFY [Suspect]
     Indication: DEPRESSION
     Dosage: 6 MG:UNKNOWN -12JAN2010
     Route: 048
     Dates: start: 20091205, end: 20100112
  2. MYSLEE [Concomitant]
     Dosage: TABS
  3. BROTIZOLAM [Concomitant]

REACTIONS (1)
  - EOSINOPHILIC PNEUMONIA [None]
